FAERS Safety Report 9645713 (Version 4)
Quarter: 2015Q4

REPORT INFORMATION
  Report Type: Spontaneous
  Country: US (occurrence: US)
  Receive Date: 20131025
  Receipt Date: 20151117
  Transmission Date: 20160305
  Serious: Yes (Other)
  Sender: FDA-Public Use
  Company Number: CHPA2013US016061

PATIENT
  Age: 78 Year
  Sex: Female

DRUGS (8)
  1. 4 WAY SALINE MOISTURIZING MIST [Suspect]
     Active Substance: SODIUM CHLORIDE
     Indication: PROPHYLAXIS
     Dosage: UNK
  2. GLUCOSAMINE [Concomitant]
     Active Substance: GLUCOSAMINE
     Dosage: UNK, UNK
  3. MULTAMIN//VITAMINS NOS [Concomitant]
     Dosage: UNK, UNK
  4. ATORVASTATIN [Concomitant]
     Active Substance: ATORVASTATIN
     Dosage: UNK, UNK
  5. PLAVIX [Concomitant]
     Active Substance: CLOPIDOGREL BISULFATE
     Dosage: UNK, UNK
  6. 4 WAY SALINE MOISTURIZING MIST [Suspect]
     Active Substance: SODIUM CHLORIDE
     Indication: SINUS DISORDER
     Dosage: A FEW SPRAYS PER NOSTRIL, ONCE OR TWICE PER DAY, ABOUT 5 DAYS PER WEEK
     Route: 045
  7. COENZYME Q10 [Concomitant]
     Active Substance: UBIDECARENONE
     Dosage: UNK, UNK
  8. RAMPRIL [Concomitant]
     Dosage: UNK, UNK

REACTIONS (7)
  - Bronchitis [Recovered/Resolved]
  - Sinus disorder [Recovered/Resolved]
  - Therapeutic response unexpected [Unknown]
  - Expired product administered [Unknown]
  - Product use issue [Unknown]
  - Cardiac disorder [Unknown]
  - Seasonal allergy [Recovered/Resolved]

NARRATIVE: CASE EVENT DATE: 201310
